FAERS Safety Report 5398217-5 (Version None)
Quarter: 2007Q3

REPORT INFORMATION
  Report Type: 
  Country: None (occurrence: None)
  Receive Date: 20070726
  Receipt Date: 20070716
  Transmission Date: 20080115
  Serious: Yes (Other)
  Sender: FDA-Public Use
  Company Number: GB-PFIZER INC-2007058954

PATIENT
  Age: 21 Year
  Sex: Male

DRUGS (1)
  1. DOXYCYCLINE [Suspect]
     Route: 048
     Dates: start: 20070704, end: 20070705

REACTIONS (8)
  - ABDOMINAL PAIN [None]
  - CHEST PAIN [None]
  - DIZZINESS [None]
  - MUSCULOSKELETAL STIFFNESS [None]
  - NAUSEA [None]
  - PAIN [None]
  - PAIN IN EXTREMITY [None]
  - PARAESTHESIA [None]
